FAERS Safety Report 23799188 (Version 1)
Quarter: 2024Q2

REPORT INFORMATION
  Report Type: Spontaneous
  Country: US (occurrence: US)
  Receive Date: 20240430
  Receipt Date: 20240430
  Transmission Date: 20240716
  Serious: Yes (Other)
  Sender: FDA-Public Use
  Company Number: US-PFIZER INC-PV202400055688

PATIENT
  Age: 64 Year
  Sex: Female

DRUGS (1)
  1. DOXYCYCLINE HYCLATE [Suspect]
     Active Substance: DOXYCYCLINE HYCLATE
     Dosage: UNK

REACTIONS (5)
  - Anaphylactic reaction [Unknown]
  - Drug hypersensitivity [Unknown]
  - Rash [Unknown]
  - Dyspnoea [Unknown]
  - Vomiting [Unknown]
